FAERS Safety Report 6718301-0 (Version None)
Quarter: 2010Q2

REPORT INFORMATION
  Report Type: 
  Country: None (occurrence: None)
  Receive Date: 20100505
  Receipt Date: 20100421
  Transmission Date: 20101027
  Serious: Yes (Other)
  Sender: FDA-Public Use
  Company Number: 1-22327236

PATIENT
  Age: 29 Year
  Sex: Female
  Weight: 65.7716 kg

DRUGS (5)
  1. FENTANYL [Suspect]
     Indication: COMPLEX REGIONAL PAIN SYNDROME
     Dosage: 100MCG/HR EVERY 3 DAY, TRANSDERMAL
     Route: 062
     Dates: start: 20100301, end: 20100414
  2. FENTANYL [Suspect]
     Dosage: TRANSDERMAL
     Route: 062
     Dates: start: 20050101
  3. VICODIN (HYDROCODONE AND ACETAMINOPHEN) [Concomitant]
  4. VALIUM [Concomitant]
  5. LEXAPRO [Concomitant]

REACTIONS (17)
  - AGGRESSION [None]
  - APPLICATION SITE EROSION [None]
  - APPLICATION SITE ERYTHEMA [None]
  - APPLICATION SITE PAIN [None]
  - APPLICATION SITE SCAB [None]
  - APPLICATION SITE ULCER [None]
  - APPLICATION SITE VESICLES [None]
  - DIZZINESS [None]
  - FEELING HOT [None]
  - HOMICIDAL IDEATION [None]
  - IMPAIRED WORK ABILITY [None]
  - INAPPROPRIATE SCHEDULE OF DRUG ADMINISTRATION [None]
  - MIGRAINE [None]
  - NAUSEA [None]
  - OVERDOSE [None]
  - SOMNOLENCE [None]
  - VOMITING [None]
